FAERS Safety Report 7639170-0 (Version None)
Quarter: 2011Q3

REPORT INFORMATION
  Report Type: 
  Country: None (occurrence: None)
  Receive Date: 20110727
  Receipt Date: 20110722
  Transmission Date: 20111222
  Serious: Yes (Hospitalization, Other)
  Sender: FDA-Public Use
  Company Number: FR-PFIZER INC-2011166482

PATIENT
  Age: 76 Year
  Sex: Male

DRUGS (1)
  1. ATORVASTATIN CALCIUM [Suspect]
     Dosage: UNK
     Route: 048
     Dates: end: 20101001

REACTIONS (2)
  - LEUKOCYTOSIS [None]
  - LUNG DISORDER [None]
